FAERS Safety Report 12705449 (Version 1)
Quarter: 2016Q3

REPORT INFORMATION
  Report Type: Spontaneous
  Country: US (occurrence: US)
  Receive Date: 20160901
  Receipt Date: 20160901
  Transmission Date: 20161109
  Serious: No
  Sender: FDA-Public Use
  Company Number: US-ASTRAZENECA-2016SE65440

PATIENT
  Age: 895 Month
  Sex: Male
  Weight: 64.9 kg

DRUGS (18)
  1. NEURONTIN [Concomitant]
     Active Substance: GABAPENTIN
     Indication: NEURALGIA
     Dosage: 300.0MG AS REQUIRED
  2. FLOMAX [Concomitant]
     Active Substance: TAMSULOSIN HYDROCHLORIDE
     Indication: PROSTATIC DISORDER
  3. VITAMIN B COMPLEX [Concomitant]
     Active Substance: CYANOCOBALAMIN\DEXPANTHENOL\NIACINAMIDE\PYRIDOXINE HYDROCHLORIDE\RIBOFLAVIN 5^-PHOSPHATE SODIUM\THIAMINE HYDROCHLORIDE\VITAMIN B COMPLEX
     Dosage: DAILY
  4. VITAMIN B12 [Concomitant]
     Active Substance: CYANOCOBALAMIN
  5. ARIMIDEX [Suspect]
     Active Substance: ANASTROZOLE
     Route: 048
  6. VITAMIN D3 [Concomitant]
     Active Substance: CHOLECALCIFEROL
     Dosage: 1000 UNITS DAILY
     Dates: start: 201404
  7. TAGRISSO [Suspect]
     Active Substance: OSIMERTINIB
     Indication: LUNG NEOPLASM MALIGNANT
     Route: 048
  8. ZOCOR [Concomitant]
     Active Substance: SIMVASTATIN
     Indication: CARDIAC DISORDER
     Dosage: 10MG BEDTIME
  9. VICODIN [Concomitant]
     Active Substance: ACETAMINOPHEN\HYDROCODONE BITARTRATE
     Indication: BACK PAIN
     Dosage: 300.0MG AS REQUIRED
  10. RYTHMOL [Concomitant]
     Active Substance: PROPAFENONE HYDROCHLORIDE
     Indication: ATRIAL FIBRILLATION
  11. NEURONTIN [Concomitant]
     Active Substance: GABAPENTIN
     Indication: NECK PAIN
     Dosage: 300.0MG AS REQUIRED
  12. VICODIN [Concomitant]
     Active Substance: ACETAMINOPHEN\HYDROCODONE BITARTRATE
     Indication: MUSCULOSKELETAL PAIN
     Dosage: 300.0MG AS REQUIRED
  13. TURMERIC ROOT [Concomitant]
     Indication: INFLAMMATION
     Dates: start: 201404
  14. TARCIVA [Concomitant]
     Route: 048
     Dates: start: 201403
  15. TAGRISSO [Suspect]
     Active Substance: OSIMERTINIB
     Indication: LUNG NEOPLASM MALIGNANT
     Route: 048
     Dates: start: 201512
  16. METHADONE [Concomitant]
     Active Substance: METHADONE HYDROCHLORIDE
     Indication: LUNG NEOPLASM MALIGNANT
     Route: 048
     Dates: start: 201404
  17. AMBIEM [Concomitant]
     Indication: SLEEP DISORDER
     Dosage: AS NEEDED
  18. MINOCYCLINE [Concomitant]
     Active Substance: MINOCYCLINE\MINOCYCLINE HYDROCHLORIDE
     Indication: RASH
     Dates: start: 201403

REACTIONS (7)
  - Tongue disorder [Not Recovered/Not Resolved]
  - Oral mucosal eruption [Not Recovered/Not Resolved]
  - Dysgeusia [Not Recovered/Not Resolved]
  - Oral pain [Not Recovered/Not Resolved]
  - Rash [Not Recovered/Not Resolved]
  - Intentional product misuse [Not Recovered/Not Resolved]
  - Weight decreased [Not Recovered/Not Resolved]

NARRATIVE: CASE EVENT DATE: 201601
